FAERS Safety Report 9959134 (Version 1)
Quarter: 2014Q1

REPORT INFORMATION
  Report Type: Report from Study
  Country: US (occurrence: US)
  Receive Date: 20140305
  Receipt Date: 20140305
  Transmission Date: 20141002
  Serious: Yes (Hospitalization, Other)
  Sender: FDA-Public Use
  Company Number: US-ABBVIE-13P-163-1102529-00

PATIENT
  Age: 56 Year
  Sex: Male
  Weight: 88.98 kg

DRUGS (3)
  1. HUMIRA [Suspect]
     Indication: ANKYLOSING SPONDYLITIS
     Route: 058
     Dates: start: 201302
  2. PREDN [Concomitant]
     Indication: CONDITION AGGRAVATED
  3. CELEBREX [Concomitant]
     Indication: ANKYLOSING SPONDYLITIS

REACTIONS (2)
  - Pneumonia [Recovering/Resolving]
  - Fungal infection [Unknown]
